FAERS Safety Report 5723557-7 (Version None)
Quarter: 2008Q2

REPORT INFORMATION
  Report Type: 
  Country: None (occurrence: None)
  Receive Date: 20080430
  Receipt Date: 20080422
  Transmission Date: 20081010
  Serious: Yes (Other)
  Sender: FDA-Public Use
  Company Number: B0500902A

PATIENT
  Age: 41 Year
  Sex: Male

DRUGS (2)
  1. ZINNAT [Suspect]
     Dosage: 250MG TWICE PER DAY
     Route: 048
     Dates: start: 20070908, end: 20070915
  2. PANTOPRAZOLE SODIUM [Concomitant]
     Route: 065

REACTIONS (4)
  - ABDOMINAL PAIN UPPER [None]
  - CYTOMEGALOVIRUS INFECTION [None]
  - HAEMOLYSIS [None]
  - SPLENOMEGALY [None]
